FAERS Safety Report 8550010 (Version 3)
Quarter: 2018Q4

REPORT INFORMATION
  Report Type: Spontaneous
  Country: TR (occurrence: TR)
  Receive Date: 20120507
  Receipt Date: 20181009
  Transmission Date: 20190205
  Serious: Yes (Death, Other)
  Sender: FDA-Public Use
  Company Number: TR-PFIZER INC-2012106650

PATIENT
  Age: 37 Year
  Sex: Female

DRUGS (2)
  1. DOXORUBICIN HCL [Suspect]
     Active Substance: DOXORUBICIN HYDROCHLORIDE
     Indication: BREAST CANCER
     Dosage: 40 MG/M2 ON DAY ONE AT 28-DAY INTERVALS
  2. CYCLOPHOSPHAMIDE. [Suspect]
     Active Substance: CYCLOPHOSPHAMIDE
     Indication: BREAST CANCER
     Dosage: 200 MG/M2/ DAY ON DAYS THREE TO SIX AT 28-DAY INTERVALS

REACTIONS (5)
  - Sepsis [Fatal]
  - Respiratory failure [Fatal]
  - Acute myeloid leukaemia [Unknown]
  - Second primary malignancy [Unknown]
  - Aspergillus infection [Unknown]
